FAERS Safety Report 4833541-3 (Version None)
Quarter: 2005Q4

REPORT INFORMATION
  Report Type: 
  Country: None (occurrence: None)
  Receive Date: 20051114
  Receipt Date: 20050930
  Transmission Date: 20060501
  Serious: Yes (Death)
  Sender: FDA-Public Use
  Company Number: 2005AL004172

PATIENT
  Age: 40 Year
  Sex: 0

DRUGS (3)
  1. CLONAZEPAM [Suspect]
  2. QUETIAPINE [Suspect]
  3. ESCITALOPRAM OXALATE [Suspect]

REACTIONS (5)
  - ASPIRATION [None]
  - CARDIAC ARREST [None]
  - MULTIPLE DRUG OVERDOSE [None]
  - RESPIRATORY ARREST [None]
  - UNEVALUABLE EVENT [None]
